FAERS Safety Report 8622789-8 (Version None)
Quarter: 2012Q3

REPORT INFORMATION
  Report Type: 
  Country: None (occurrence: None)
  Receive Date: 20120827
  Receipt Date: 20120821
  Transmission Date: 20120928
  Serious: Yes (Other)
  Sender: FDA-Public Use
  Company Number: US-JNJFOC-20120810445

PATIENT
  Sex: Female
  Weight: 96.16 kg

DRUGS (17)
  1. ASPIRIN [Concomitant]
     Indication: CARDIAC DISORDER
     Dosage: DAILY
     Route: 048
     Dates: start: 20020101
  2. UNKNOWN MEDICATION [Concomitant]
     Route: 065
  3. OCUVITE NOS [Concomitant]
     Route: 065
  4. FLUTICASONE PROPIONATE [Concomitant]
     Indication: WHEEZING
     Route: 065
     Dates: start: 20080101
  5. PRILOSEC [Concomitant]
     Indication: ULCER
     Dosage: TWICE DAILY
     Route: 048
  6. VITAMINS NOS [Concomitant]
     Route: 065
  7. CALCIUM [Concomitant]
     Route: 065
  8. XANAX [Concomitant]
     Indication: ANXIETY
     Route: 065
  9. HYDROCHLOROTHIAZIDE [Concomitant]
     Indication: BLOOD PRESSURE
     Dosage: DAILY
     Route: 048
  10. CINNAMON [Concomitant]
     Route: 065
  11. CELEBREX [Concomitant]
     Route: 065
  12. TURMERIC [Concomitant]
     Indication: MUSCLE SPASMS
     Route: 065
  13. LASIX [Concomitant]
     Indication: OEDEMA PERIPHERAL
     Route: 065
  14. METOPROLOL SUCCINATE EXTENDED RELEASE [Concomitant]
     Indication: BLOOD PRESSURE
     Dosage: DAILY
     Route: 048
  15. PRILOSEC [Concomitant]
     Indication: HIATUS HERNIA
     Dosage: TWICE DAILY
     Route: 048
  16. NUCYNTA [Suspect]
     Indication: PAIN
     Dosage: 4 TABLETS DAILY
     Route: 048
     Dates: start: 20120818
  17. PRAVASTATIN [Concomitant]
     Indication: BLOOD CHOLESTEROL
     Route: 048

REACTIONS (5)
  - DEPRESSION [None]
  - WITHDRAWAL SYNDROME [None]
  - PAIN [None]
  - PRODUCT QUALITY ISSUE [None]
  - HOT FLUSH [None]
